FAERS Safety Report 13091302 (Version 1)
Quarter: 2017Q1

REPORT INFORMATION
  Report Type: Spontaneous
  Country: US (occurrence: US)
  Receive Date: 20170106
  Receipt Date: 20170106
  Transmission Date: 20170428
  Serious: No
  Sender: FDA-Public Use
  Company Number: US-JNJFOC-20161219947

PATIENT
  Age: 45 Year
  Sex: Female

DRUGS (3)
  1. VISINE UNSPECIFIED [Suspect]
     Active Substance: TETRAHYDROZOLINE HYDROCHLORIDE
     Indication: EYE IRRITATION
     Route: 047
  2. VISINE UNSPECIFIED [Suspect]
     Active Substance: TETRAHYDROZOLINE HYDROCHLORIDE
     Indication: OCULAR HYPERAEMIA
     Route: 047
  3. VISINE UNSPECIFIED [Suspect]
     Active Substance: TETRAHYDROZOLINE HYDROCHLORIDE
     Indication: HYPERSENSITIVITY
     Route: 047

REACTIONS (1)
  - Unintentional use for unapproved indication [Unknown]
